FAERS Safety Report 6675691-5 (Version None)
Quarter: 2010Q2

REPORT INFORMATION
  Report Type: 
  Country: None (occurrence: None)
  Receive Date: 20100409
  Receipt Date: 20100326
  Transmission Date: 20101027
  Serious: Yes (Hospitalization, Other)
  Sender: FDA-Public Use
  Company Number: US-ELI_LILLY_AND_COMPANY-US201003008230

PATIENT
  Age: 47 Year
  Sex: Male

DRUGS (2)
  1. EFFIENT [Suspect]
     Indication: ACUTE MYOCARDIAL INFARCTION
     Dosage: UNK, LOADING DOSE
  2. EFFIENT [Suspect]
     Dosage: 10 MG, DAILY (1/D)

REACTIONS (2)
  - COLON CANCER [None]
  - DRUG DOSE OMISSION [None]
